FAERS Safety Report 10610940 (Version 1)
Quarter: 2014Q4

REPORT INFORMATION
  Report Type: Spontaneous
  Country: US (occurrence: US)
  Receive Date: 20141126
  Receipt Date: 20141126
  Transmission Date: 20150529
  Serious: No
  Sender: FDA-Public Use
  Company Number: US-MALLINCKRODT-T201403122

PATIENT
  Age: 62 Year
  Sex: Female

DRUGS (2)
  1. GABLOFEN [Suspect]
     Active Substance: BACLOFEN
     Indication: MUSCLE SPASTICITY
     Dosage: 110.0 MCG/DAY
     Route: 037
     Dates: start: 201407
  2. GABLOFEN [Suspect]
     Active Substance: BACLOFEN
     Dosage: 1000 MCG/ML; UNK DOSE
     Route: 037
     Dates: end: 201407

REACTIONS (3)
  - Muscle twitching [Recovered/Resolved]
  - Respiratory disorder [Recovered/Resolved]
  - Musculoskeletal stiffness [Recovered/Resolved]

NARRATIVE: CASE EVENT DATE: 201407
